FAERS Safety Report 25726007 (Version 2)
Quarter: 2025Q3

REPORT INFORMATION
  Report Type: Report from Study
  Country: US (occurrence: US)
  Receive Date: 20250826
  Receipt Date: 20250902
  Transmission Date: 20251021
  Serious: Yes (Hospitalization)
  Sender: ABBVIE
  Company Number: US-ABBVIE-6429935

PATIENT
  Age: 9 Year
  Sex: Male

DRUGS (2)
  1. LINZESS [Suspect]
     Active Substance: LINACLOTIDE
     Indication: Constipation
     Dosage: FORM STRENGTH: 290 MG
     Route: 048
     Dates: start: 2023, end: 20250701
  2. LINZESS [Suspect]
     Active Substance: LINACLOTIDE
     Indication: Constipation
     Dosage: FORM STRENGTH: 145 MG
     Route: 048
     Dates: start: 202508, end: 202508

REACTIONS (8)
  - Stool pH decreased [Recovering/Resolving]
  - Constipation [Not Recovered/Not Resolved]
  - Skin irritation [Recovered/Resolved]
  - Blister [Recovered/Resolved]
  - Staphylococcal infection [Recovered/Resolved]
  - Dermatitis contact [Recovered/Resolved]
  - Rash [Recovered/Resolved]
  - Skin burning sensation [Recovered/Resolved]

NARRATIVE: CASE EVENT DATE: 20250101
